FAERS Safety Report 13372363 (Version 1)
Quarter: 2017Q1

REPORT INFORMATION
  Report Type: Spontaneous
  Country: US (occurrence: US)
  Receive Date: 20170327
  Receipt Date: 20170327
  Transmission Date: 20170429
  Serious: Yes (Other)
  Sender: FDA-Public Use
  Company Number: US-TORRENT-00002629

PATIENT
  Age: 56 Year
  Sex: Male

DRUGS (6)
  1. QUETIAPINE. [Suspect]
     Active Substance: QUETIAPINE
  2. AMLODIPINE [Concomitant]
     Active Substance: AMLODIPINE BESYLATE
  3. PRAVASTATIN. [Concomitant]
     Active Substance: PRAVASTATIN
  4. INSULIN GLARGINE [Concomitant]
     Active Substance: INSULIN GLARGINE
  5. INSULIN GLULISINE [Concomitant]
     Active Substance: INSULIN GLULISINE
  6. BISOPROLOL/HYDROCHLOROTHIAZIDE [Concomitant]

REACTIONS (2)
  - Glycosylated haemoglobin increased [Recovered/Resolved]
  - Prescription drug used without a prescription [Recovered/Resolved]
